FAERS Safety Report 7770354-7 (Version None)
Quarter: 2011Q3

REPORT INFORMATION
  Report Type: 
  Country: None (occurrence: None)
  Receive Date: 20110922
  Receipt Date: 20100824
  Transmission Date: 20111222
  Serious: No
  Sender: FDA-Public Use
  Company Number: US-ASTRAZENECA-2008UW04647

PATIENT
  Age: 13815 Day
  Sex: Male
  Weight: 142.9 kg

DRUGS (4)
  1. SEROQUEL [Suspect]
     Dosage: 100 MG TO 200 MG
     Route: 048
     Dates: start: 20000523, end: 20071210
  2. SEROQUEL [Suspect]
     Dosage: 100 MG TO 200 MG
     Route: 048
     Dates: start: 20000523, end: 20071210
  3. SEROQUEL [Suspect]
     Indication: ANXIETY
     Dosage: 100 MG TO 200 MG
     Route: 048
     Dates: start: 20000101, end: 20070201
  4. SEROQUEL [Suspect]
     Indication: DEPRESSION
     Dosage: 100 MG TO 200 MG
     Route: 048
     Dates: start: 20000101, end: 20070201

REACTIONS (12)
  - ILL-DEFINED DISORDER [None]
  - GALLBLADDER DISORDER [None]
  - HYPERLIPIDAEMIA [None]
  - JOINT INJURY [None]
  - BACK INJURY [None]
  - TYPE 2 DIABETES MELLITUS [None]
  - OBESITY [None]
  - WEIGHT INCREASED [None]
  - BLOOD CHOLESTEROL INCREASED [None]
  - HYPOAESTHESIA [None]
  - LIMB INJURY [None]
  - DIABETIC COMPLICATION [None]
